FAERS Safety Report 6194900-2 (Version None)
Quarter: 2009Q2

REPORT INFORMATION
  Report Type: 
  Country: None (occurrence: None)
  Receive Date: 20090519
  Receipt Date: 20090515
  Transmission Date: 20091009
  Serious: Yes (Life-Threatening)
  Sender: FDA-Public Use
  Company Number: AT-ASTRAZENECA-2009PK01318

PATIENT
  Age: 47 Year
  Sex: Male

DRUGS (3)
  1. SEROQUEL [Suspect]
     Indication: DEPRESSION
     Route: 048
  2. SEROQUEL [Suspect]
     Indication: AGITATION
     Route: 048
  3. RISPERDAL [Suspect]
     Indication: PSYCHOTIC DISORDER

REACTIONS (2)
  - AGRANULOCYTOSIS [None]
  - RED BLOOD CELL COUNT DECREASED [None]
